FAERS Safety Report 9551334 (Version 2)
Quarter: 2013Q4

REPORT INFORMATION
  Report Type: Spontaneous
  Country: US (occurrence: None)
  Receive Date: 20130724
  Receipt Date: 20131226
  Transmission Date: 20140711
  Serious: Yes (Life-Threatening, Hospitalization)
  Sender: FDA-Public Use
  Company Number: PHEH2013US008543

PATIENT
  Age: 65 Year
  Sex: Female
  Weight: 62.1 kg

DRUGS (2)
  1. AFINITOR [Suspect]
     Indication: BREAST CANCER METASTATIC
     Route: 048
     Dates: start: 20130114, end: 20130326
  2. AROMASIN [Concomitant]

REACTIONS (4)
  - Interstitial lung disease [None]
  - Pneumonitis [None]
  - Dyspnoea [None]
  - Cough [None]
